FAERS Safety Report 18164501 (Version 2)
Quarter: 2020Q3

REPORT INFORMATION
  Report Type: Spontaneous
  Country: TR (occurrence: TR)
  Receive Date: 20200818
  Receipt Date: 20200827
  Transmission Date: 20201103
  Serious: Yes (Other)
  Sender: FDA-Public Use
  Company Number: TR-ROCHE-2658957

PATIENT
  Age: 62 Year
  Sex: Male

DRUGS (1)
  1. OCREVUS [Suspect]
     Active Substance: OCRELIZUMAB
     Indication: SECONDARY PROGRESSIVE MULTIPLE SCLEROSIS
     Dosage: LAST DOSE ADMINISTERED ON 08/NOV/2019.
     Route: 065

REACTIONS (1)
  - Lung neoplasm malignant [Unknown]
